FAERS Safety Report 8125396-9 (Version None)
Quarter: 2012Q1

REPORT INFORMATION
  Report Type: 
  Country: None (occurrence: None)
  Receive Date: 20120209
  Receipt Date: 20120207
  Transmission Date: 20120608
  Serious: Yes (Other)
  Sender: FDA-Public Use
  Company Number: IT-BAYER-2012-012431

PATIENT
  Age: 46 Year
  Sex: Male

DRUGS (1)
  1. NEXAVAR [Suspect]
     Indication: CHEMOTHERAPY
     Dosage: 800 MG, QD
     Route: 048
     Dates: start: 20110718, end: 20111108

REACTIONS (1)
  - ASCITES [None]
